FAERS Safety Report 5918850-9 (Version None)
Quarter: 2008Q4

REPORT INFORMATION
  Report Type: 
  Country: None (occurrence: None)
  Receive Date: 20081015
  Receipt Date: 20081003
  Transmission Date: 20090506
  Serious: Yes (Death, Hospitalization)
  Sender: FDA-Public Use
  Company Number: ES-AMGEN-US312536

PATIENT
  Age: 48 Year
  Sex: Male

DRUGS (5)
  1. ENBREL [Suspect]
     Indication: RHEUMATOID ARTHRITIS
     Route: 058
     Dates: start: 20080111
  2. COZAAR [Concomitant]
     Indication: HYPERTENSION
     Dosage: UNKNOWN
     Route: 065
     Dates: start: 20060101
  3. IBUPROFEN TABLETS [Concomitant]
     Dosage: ON DEMAND
     Route: 065
  4. ARAVA [Concomitant]
     Route: 065
     Dates: start: 20080101
  5. PREDNISONE [Concomitant]
     Route: 065

REACTIONS (4)
  - LOCALISED INFECTION [None]
  - POSTOPERATIVE WOUND INFECTION [None]
  - STAPHYLOCOCCAL SEPSIS [None]
  - VENTRICULAR FIBRILLATION [None]
